FAERS Safety Report 22159902 (Version 1)
Quarter: 2023Q1

REPORT INFORMATION
  Report Type: Spontaneous
  Country: US (occurrence: None)
  Receive Date: 20230330
  Receipt Date: 20230330
  Transmission Date: 20230417
  Serious: Yes (Hospitalization)
  Sender: FDA-Public Use
  Company Number: None

PATIENT
  Age: 50 Year
  Sex: Male
  Weight: 59.3 kg

DRUGS (9)
  1. TECVAYLI [Suspect]
     Active Substance: TECLISTAMAB-CQYV
     Indication: Plasma cell myeloma
     Dosage: 94.5 MG ONCE SUBCUTANEOUS?
     Route: 058
     Dates: start: 20230222, end: 20230308
  2. DECADRON [Concomitant]
     Active Substance: DEXAMETHASONE
     Dates: start: 20230319, end: 20230327
  3. methylPREDNISolone (SOLU-Medrol) [Concomitant]
     Dates: start: 20230316, end: 20230318
  4. acyclovir (Zovirax) capsule [Concomitant]
     Dates: start: 20230222, end: 20230321
  5. atovaquone (Mepron) oral suspension [Concomitant]
     Dates: start: 20230222, end: 20230330
  6. NOXAFIL [Concomitant]
     Active Substance: POSACONAZOLE
     Dates: start: 20230316
  7. anakinra (Kineret) [Concomitant]
     Dates: start: 20230317, end: 20230319
  8. ganciclovir (Cytovene) [Concomitant]
     Dates: start: 20230317, end: 20230324
  9. CALCIUM CARBONATE\VITAMIN D [Concomitant]
     Active Substance: CALCIUM CARBONATE\VITAMIN D
     Dates: start: 20230316, end: 20230324

REACTIONS (3)
  - Headache [None]
  - Mental status changes [None]
  - Immune effector cell-associated neurotoxicity syndrome [None]

NARRATIVE: CASE EVENT DATE: 20230315
